FAERS Safety Report 6892586-2 (Version None)
Quarter: 2010Q3

REPORT INFORMATION
  Report Type: 
  Country: None (occurrence: None)
  Receive Date: 20100731
  Receipt Date: 20080718
  Transmission Date: 20110219
  Serious: No
  Sender: FDA-Public Use
  Company Number: US-PFIZER INC-2008040546

PATIENT
  Sex: Female
  Weight: 65.9 kg

DRUGS (7)
  1. NORVASC [Suspect]
     Indication: HYPERTENSION
     Route: 048
     Dates: start: 20080101
  2. METOPROLOL TARTRATE [Concomitant]
  3. SYNTHROID [Concomitant]
  4. ACETYLSALICYLIC ACID SRT [Concomitant]
  5. MULTI-VITAMINS [Concomitant]
  6. CALCIUM CARBONATE [Concomitant]
  7. FISH OIL [Concomitant]

REACTIONS (2)
  - NIGHT SWEATS [None]
  - OEDEMA [None]
